FAERS Safety Report 5671750-4 (Version None)
Quarter: 2008Q1

REPORT INFORMATION
  Report Type: 
  Country: None (occurrence: None)
  Receive Date: 20080314
  Receipt Date: 20080306
  Transmission Date: 20080703
  Serious: Yes (Other)
  Sender: FDA-Public Use
  Company Number: 2008US000700

PATIENT
  Age: 23 Year
  Sex: Female

DRUGS (3)
  1. PROGRAF [Suspect]
     Indication: LIVER TRANSPLANT
  2. PREDNISOLONE [Concomitant]
  3. IMIPENEM (IMIPENEM) [Concomitant]

REACTIONS (2)
  - CYTOMEGALOVIRUS HEPATITIS [None]
  - HAEMOLYTIC ANAEMIA [None]
